FAERS Safety Report 20509420 (Version 1)
Quarter: 2022Q1

REPORT INFORMATION
  Report Type: Spontaneous
  Country: DK (occurrence: DK)
  Receive Date: 20220223
  Receipt Date: 20220223
  Transmission Date: 20220423
  Serious: Yes (Hospitalization, Other)
  Sender: FDA-Public Use
  Company Number: DK-DKMA-WBS-0093629

PATIENT
  Age: 72 Year
  Sex: Female
  Weight: 53 kg

DRUGS (2)
  1. ALENDRONIC ACID [Suspect]
     Active Substance: ALENDRONIC ACID
     Indication: Product used for unknown indication
     Dosage: 70 MILLIGRAM, EVERY WEEK (STRENGTH UNKNOWN)
     Route: 065
     Dates: start: 20190702
  2. ZOLEDRONIC ACID [Suspect]
     Active Substance: ZOLEDRONIC ACID
     Indication: Product used for unknown indication
     Dosage: UNK (STRENGTH: 4MG/5ML)
     Route: 042
     Dates: start: 20191104, end: 20210802

REACTIONS (3)
  - Osteonecrosis of jaw [Not Recovered/Not Resolved]
  - Swelling face [Unknown]
  - Jaw disorder [Unknown]

NARRATIVE: CASE EVENT DATE: 20210101
